FAERS Safety Report 20980132 (Version 1)
Quarter: 2022Q2

REPORT INFORMATION
  Report Type: Spontaneous
  Country: US (occurrence: US)
  Receive Date: 20220620
  Receipt Date: 20220620
  Transmission Date: 20220721
  Serious: No
  Sender: FDA-Public Use
  Company Number: US-ALM-HQ-US-2022-1155

PATIENT
  Age: 26 Year
  Sex: Male

DRUGS (1)
  1. TIRBANIBULIN [Suspect]
     Active Substance: TIRBANIBULIN
     Indication: Anogenital warts
     Dosage: 1/3-1/2 SACHET OF TOPICAL TIRBANIBULIN OINTMENT FOR THE NEXT 5 NIGHTS, WAIT FOR 2 WEEKS, AND THEN TO
     Route: 061

REACTIONS (5)
  - Off label use [Recovered/Resolved]
  - Application site erythema [Recovered/Resolved]
  - Application site exfoliation [Recovered/Resolved]
  - Application site dryness [Recovered/Resolved]
  - Post inflammatory pigmentation change [Recovered/Resolved]
